FAERS Safety Report 4546074-9 (Version None)
Quarter: 2005Q1

REPORT INFORMATION
  Report Type: 
  Country: None (occurrence: None)
  Receive Date: 20050105
  Receipt Date: 20050105
  Transmission Date: 20050727
  Serious: Yes (Disabling)
  Sender: FDA-Public Use
  Company Number: None

PATIENT
  Age: 59 Year
  Sex: Male
  Weight: 140.6151 kg

DRUGS (3)
  1. AMIODARONE 200MG PAR49884045802 [Suspect]
     Indication: CARDIAC DISORDER
     Dosage: 200MG DAILY X 2 ORAL
     Route: 048
     Dates: start: 19991120, end: 20021122
  2. HEART MEDS [Concomitant]
  3. BLOOD PRESSURE MEDS [Concomitant]

REACTIONS (1)
  - DYSPNOEA [None]
